FAERS Safety Report 8531823-5 (Version None)
Quarter: 2012Q3

REPORT INFORMATION
  Report Type: 
  Country: None (occurrence: None)
  Receive Date: 20120716
  Receipt Date: 20120716
  Transmission Date: 20120928
  Serious: Yes (Other)
  Sender: FDA-Public Use
  Company Number: None

PATIENT
  Sex: Female

DRUGS (1)
  1. OLANZAPINE [Suspect]
     Indication: BIPOLAR DISORDER
     Dosage: 5MG QHS PO
     Route: 048
     Dates: start: 20120605, end: 20120612

REACTIONS (4)
  - MANIA [None]
  - DISEASE RECURRENCE [None]
  - INSOMNIA [None]
  - PRODUCT SUBSTITUTION ISSUE [None]
